FAERS Safety Report 18313972 (Version 1)
Quarter: 2020Q3

REPORT INFORMATION
  Report Type: Spontaneous
  Country: US (occurrence: US)
  Receive Date: 20200925
  Receipt Date: 20200925
  Transmission Date: 20201103
  Serious: Yes (Other)
  Sender: FDA-Public Use
  Company Number: NVSC2020US256813

PATIENT
  Sex: Male

DRUGS (1)
  1. KYMRIAH [Suspect]
     Active Substance: TISAGENLECLEUCEL
     Indication: ACUTE LYMPHOCYTIC LEUKAEMIA
     Dosage: UNK (0.1?2.5 X 10^8)
     Route: 065
     Dates: start: 20200218

REACTIONS (1)
  - B-lymphocyte count abnormal [Unknown]

NARRATIVE: CASE EVENT DATE: 20200723
